FAERS Safety Report 5716936-5 (Version None)
Quarter: 2008Q2

REPORT INFORMATION
  Report Type: 
  Country: None (occurrence: None)
  Receive Date: 20080422
  Receipt Date: 20080407
  Transmission Date: 20081010
  Serious: Yes (Hospitalization)
  Sender: FDA-Public Use
  Company Number: 2008PL000047

PATIENT
  Age: 55 Year
  Sex: Male

DRUGS (2)
  1. IMURAN [Suspect]
     Indication: IMMUNOSUPPRESSANT DRUG THERAPY
     Dosage: 75 MG;QD;PO
     Route: 048
  2. METHYLPREDNISOLONE [Concomitant]

REACTIONS (11)
  - BURSITIS [None]
  - DISEASE PROGRESSION [None]
  - HEPATITIS C [None]
  - INTERVERTEBRAL DISCITIS [None]
  - MALAISE [None]
  - MYCOBACTERIUM CHELONEI INFECTION [None]
  - OSTEOMYELITIS [None]
  - PAIN IN EXTREMITY [None]
  - TINNITUS [None]
  - TRANSAMINASES INCREASED [None]
  - VERTIGO [None]
